FAERS Safety Report 6586757-2 (Version None)
Quarter: 2010Q1

REPORT INFORMATION
  Report Type: 
  Country: None (occurrence: None)
  Receive Date: 20100217
  Receipt Date: 20090714
  Transmission Date: 20100710
  Serious: No
  Sender: FDA-Public Use
  Company Number: US-ALLERGAN-0909781US

PATIENT
  Sex: Female

DRUGS (1)
  1. BOTOX [Suspect]
     Indication: FACIAL SPASM
     Dosage: 30 UNITS, SINGLE
     Route: 030
     Dates: start: 20090709, end: 20090709

REACTIONS (3)
  - CONTUSION [None]
  - DRY EYE [None]
  - LAGOPHTHALMOS [None]
